FAERS Safety Report 9814437 (Version 2)
Quarter: 2014Q1

REPORT INFORMATION
  Report Type: Spontaneous
  Country: GB (occurrence: GB)
  Receive Date: 20140113
  Receipt Date: 20140208
  Transmission Date: 20141002
  Serious: Yes (Death, Other)
  Sender: FDA-Public Use
  Company Number: GB-MYLANLABS-2014S1000069

PATIENT
  Age: 59 Year
  Sex: Male

DRUGS (10)
  1. CITALOPRAM [Suspect]
     Indication: DEPRESSION
     Route: 048
  2. AMISULPRIDE [Suspect]
     Indication: SCHIZOPHRENIA
     Route: 048
  3. CLOZARIL [Suspect]
     Indication: SCHIZOPHRENIA
     Route: 048
     Dates: start: 20100808
  4. CLOZARIL [Suspect]
     Indication: SCHIZOPHRENIA
     Route: 048
  5. LITHIUM [Suspect]
     Indication: PRODUCT USED FOR UNKNOWN INDICATION
     Dates: start: 2010
  6. AMLODIPINE [Concomitant]
     Indication: BLOOD PRESSURE INCREASED
  7. AMOXICILLIN [Concomitant]
     Indication: PRODUCT USED FOR UNKNOWN INDICATION
  8. DOCUSATE [Concomitant]
     Indication: ABDOMINAL DISCOMFORT
  9. SENNA [Concomitant]
     Indication: ABDOMINAL DISCOMFORT
     Route: 048
  10. SIMVASTATIN [Concomitant]
     Indication: BLOOD CHOLESTEROL INCREASED
     Route: 048

REACTIONS (3)
  - Death [Fatal]
  - Diabetes insipidus [Unknown]
  - Hypernatraemia [Unknown]
